FAERS Safety Report 9122650 (Version 1)
Quarter: 2013Q1

REPORT INFORMATION
  Report Type: Spontaneous
  Country: US (occurrence: US)
  Receive Date: 20130114
  Receipt Date: 20130114
  Transmission Date: 20140127
  Serious: Yes (Other)
  Sender: FDA-Public Use
  Company Number: US-ROCHE-1177817

PATIENT
  Sex: Female

DRUGS (9)
  1. BONIVA [Suspect]
     Indication: OSTEOPOROSIS
     Route: 065
     Dates: start: 2000, end: 2010
  2. BONIVA [Suspect]
     Indication: OSTEOPENIA
  3. BONIVA [Suspect]
     Indication: BONE DISORDER
  4. FOSAMAX [Suspect]
     Indication: OSTEOPOROSIS
     Route: 065
     Dates: start: 2000, end: 2010
  5. FOSAMAX [Suspect]
     Indication: OSTEOPENIA
  6. FOSAMAX [Suspect]
     Indication: BONE DISORDER
  7. FOSAMAX PLUS D [Suspect]
     Indication: OSTEOPOROSIS
     Route: 065
     Dates: start: 2000, end: 2010
  8. FOSAMAX PLUS D [Suspect]
     Indication: OSTEOPENIA
  9. FOSAMAX PLUS D [Suspect]
     Indication: BONE DISORDER

REACTIONS (2)
  - Femur fracture [Unknown]
  - Emotional distress [Unknown]
